FAERS Safety Report 7102660-3 (Version None)
Quarter: 2010Q4

REPORT INFORMATION
  Report Type: 
  Country: None (occurrence: None)
  Receive Date: 20101115
  Receipt Date: 20101104
  Transmission Date: 20110411
  Serious: Yes (Other)
  Sender: FDA-Public Use
  Company Number: NL-BAXTER-2010BH027618

PATIENT
  Sex: Male

DRUGS (2)
  1. GAMMAGARD S/D [Suspect]
     Indication: MULTIFOCAL MOTOR NEUROPATHY
     Route: 042
  2. GAMMAGARD S/D [Suspect]
     Route: 042

REACTIONS (1)
  - PULMONARY EMBOLISM [None]
